FAERS Safety Report 4684235-9 (Version None)
Quarter: 2005Q2

REPORT INFORMATION
  Report Type: 
  Country: None (occurrence: None)
  Receive Date: 20050531
  Receipt Date: 20050411
  Transmission Date: 20051028
  Serious: Yes (Hospitalization, Other)
  Sender: FDA-Public Use
  Company Number: US_0411107842

PATIENT
  Age: 31 Year
  Sex: Male
  Weight: 91 kg

DRUGS (23)
  1. ZYPREXA [Suspect]
     Indication: BIPOLAR DISORDER
     Dosage: 60 MG
     Dates: start: 19980317, end: 20030414
  2. SEROQUEL [Concomitant]
  3. RISPERDAL [Concomitant]
  4. HALDOL (HALOPERIDOL DECANOATE) [Concomitant]
  5. DEIPAKOTE (VALPROATE SEMISODIUM) [Concomitant]
  6. LITHIUM [Concomitant]
  7. PAXIL [Concomitant]
  8. GLYBURIDE [Concomitant]
  9. METFORMIN [Concomitant]
  10. INSULIN [Concomitant]
  11. ACCURETIC [Concomitant]
  12. MIRTAZAPINE [Concomitant]
  13. LISNIOPRIL (LISINOPRIL) [Concomitant]
  14. VALSARTAN [Concomitant]
  15. QUINAPRIL [Concomitant]
  16. TRIAMTERENE AND HYDROCHLOROTHIAZIDE [Concomitant]
  17. MELLARIL [Concomitant]
  18. J=KLONOPIN (CLONAZEPAM) [Concomitant]
  19. STELAZINE [Concomitant]
  20. COGENTIN [Concomitant]
  21. BENADRYL [Concomitant]
  22. ACCUPRIL [Concomitant]
  23. DIOVAN [Concomitant]

REACTIONS (22)
  - ARRHYTHMIA [None]
  - BLOOD GLUCOSE INCREASED [None]
  - DIABETES MELLITUS [None]
  - DIABETIC KETOACIDOSIS [None]
  - DIABETIC NEPHROPATHY [None]
  - ERECTILE DYSFUNCTION [None]
  - GLYCOSURIA [None]
  - HAEMATEMESIS [None]
  - HEPATIC ENZYME INCREASED [None]
  - HYPERGLYCAEMIA [None]
  - HYPERTENSION [None]
  - JOINT SWELLING [None]
  - LABYRINTHITIS [None]
  - LETHARGY [None]
  - OBESITY [None]
  - POLYDIPSIA [None]
  - POLYURIA [None]
  - PROTEINURIA [None]
  - RENAL FAILURE [None]
  - ULCER HAEMORRHAGE [None]
  - VISION BLURRED [None]
  - WEIGHT DECREASED [None]
